FAERS Safety Report 6520559-8 (Version None)
Quarter: 2009Q4

REPORT INFORMATION
  Report Type: 
  Country: None (occurrence: None)
  Receive Date: 20091229
  Receipt Date: 20091218
  Transmission Date: 20100525
  Serious: Yes (Other)
  Sender: FDA-Public Use
  Company Number: JP-PFIZER INC-2009312164

PATIENT
  Age: 51 Year
  Sex: Male

DRUGS (3)
  1. ADRIACIN [Suspect]
     Indication: MULTIPLE MYELOMA
     Dosage: UNK
     Dates: start: 20080108
  2. ONCOVIN [Concomitant]
     Dosage: UNK
     Dates: start: 20080108
  3. DEXAMETHASONE [Concomitant]
     Dosage: UNK
     Route: 048
     Dates: start: 20080108

REACTIONS (1)
  - TUMOUR LYSIS SYNDROME [None]
